FAERS Safety Report 11270085 (Version 1)
Quarter: 2015Q3

REPORT INFORMATION
  Report Type: Spontaneous
  Country: US (occurrence: US)
  Receive Date: 20150714
  Receipt Date: 20150714
  Transmission Date: 20151125
  Serious: No
  Sender: FDA-Public Use
  Company Number: US-PFIZER INC-2015229760

PATIENT
  Sex: Male

DRUGS (1)
  1. QUILLIVANT XR [Suspect]
     Active Substance: METHYLPHENIDATE HYDROCHLORIDE
     Dosage: UNK
     Dates: start: 20150708

REACTIONS (7)
  - Fatigue [Unknown]
  - Nausea [Unknown]
  - Logorrhoea [Unknown]
  - Tongue disorder [Unknown]
  - Heart rate increased [Unknown]
  - Tic [Unknown]
  - Agitation [Unknown]

NARRATIVE: CASE EVENT DATE: 20150708
